FAERS Safety Report 5956876-X (Version None)
Quarter: 2008Q4

REPORT INFORMATION
  Report Type: 
  Country: None (occurrence: None)
  Receive Date: 20081118
  Receipt Date: 20081113
  Transmission Date: 20090506
  Serious: Yes (Hospitalization)
  Sender: FDA-Public Use
  Company Number: US-JNJFOC-20081103427

PATIENT
  Age: 19 Year
  Sex: Male

DRUGS (5)
  1. TYLENOL (CAPLET) [Suspect]
     Route: 048
  2. TYLENOL (CAPLET) [Suspect]
     Indication: DRUG USE FOR UNKNOWN INDICATION
     Route: 048
  3. THERAFLU FLU AND CHEST CONGESTION [Suspect]
     Indication: RESPIRATORY TRACT CONGESTION
  4. THERAFLU FLU AND CHEST CONGESTION [Suspect]
     Indication: INFLUENZA
  5. ROBITUSSIN [Suspect]
     Indication: DRUG USE FOR UNKNOWN INDICATION

REACTIONS (2)
  - HEADACHE [None]
  - PNEUMONIA [None]
